FAERS Safety Report 11872270 (Version 1)
Quarter: 2015Q4

REPORT INFORMATION
  Report Type: Spontaneous
  Country: US (occurrence: US)
  Receive Date: 20151228
  Receipt Date: 20151228
  Transmission Date: 20160305
  Serious: Yes (Life-Threatening, Hospitalization, Other)
  Sender: FDA-Public Use
  Company Number: US-PHARMACEUTICS INTERNATIONAL, INC-2015SCPR015034

PATIENT

DRUGS (1)
  1. ZOLEDRONIC ACID [Suspect]
     Active Substance: ZOLEDRONIC ACID
     Indication: OSTEOPOROTIC FRACTURE
     Dosage: 0.013 MG/KG, UNKNOWN
     Route: 042

REACTIONS (7)
  - Systemic inflammatory response syndrome [Recovering/Resolving]
  - Acute respiratory distress syndrome [Recovering/Resolving]
  - Abdominal distension [Recovering/Resolving]
  - Product use issue [Unknown]
  - Pulmonary haemorrhage [Recovering/Resolving]
  - Diarrhoea [Recovering/Resolving]
  - Metabolic acidosis [Recovering/Resolving]
